FAERS Safety Report 4563064-0 (Version None)
Quarter: 2005Q1

REPORT INFORMATION
  Report Type: 
  Country: None (occurrence: None)
  Receive Date: 20050125
  Receipt Date: 20050112
  Transmission Date: 20050727
  Serious: Yes (Other)
  Sender: FDA-Public Use
  Company Number: HQWYE630113JAN05

PATIENT
  Age: 45 Year
  Sex: Male

DRUGS (5)
  1. INDERAL LA [Suspect]
     Dosage: 80 MG 1X PER 1 DAY
     Route: 048
  2. DEPAS(ETIZOLAM) [Suspect]
     Dosage: 4 MG 1X PER 1 DAY
     Route: 048
  3. PRAVASTATIN [Suspect]
     Dosage: Y70 MG 1 X PER 1 DAY
     Route: 048
  4. NORVASC [Suspect]
     Dosage: 10 MG 1X PER 1 DAY
  5. DISOPYRAMIDE [Suspect]
     Dosage: 300 MG 1X PER 1 DAY

REACTIONS (1)
  - INTENTIONAL MISUSE [None]
